FAERS Safety Report 20706415 (Version 1)
Quarter: 2022Q2

REPORT INFORMATION
  Report Type: Spontaneous
  Country: US (occurrence: None)
  Receive Date: 20220413
  Receipt Date: 20220413
  Transmission Date: 20220721
  Serious: Yes (Hospitalization, Disabling)
  Sender: FDA-Public Use
  Company Number: None

PATIENT
  Age: 60 Year
  Sex: Female
  Weight: 68.4 kg

DRUGS (9)
  1. URSODIOL [Suspect]
     Active Substance: URSODIOL
     Indication: Liver disorder
     Dosage: OTHER QUANTITY : 1 CAPSULE(S);?FREQUENCY : TWICE A DAY;?
     Route: 048
     Dates: start: 20180401, end: 20220412
  2. DICLOFENAC [Concomitant]
     Active Substance: DICLOFENAC
  3. TIZANIDINE [Concomitant]
  4. HYDROXYZINE [Concomitant]
  5. LISINOPRIL [Concomitant]
  6. PANTOPRAZOLE [Concomitant]
     Active Substance: PANTOPRAZOLE
  7. VITAMIN C [Concomitant]
     Active Substance: ASCORBIC ACID
  8. VITAMIN D3 [Concomitant]
  9. MINERALS\VITAMINS [Concomitant]
     Active Substance: MINERALS\VITAMINS

REACTIONS (18)
  - Insomnia [None]
  - Gastrooesophageal reflux disease [None]
  - Vomiting [None]
  - Palpitations [None]
  - Bone pain [None]
  - Abdominal discomfort [None]
  - Dizziness [None]
  - Paraesthesia [None]
  - Back pain [None]
  - Alopecia [None]
  - Rhinorrhoea [None]
  - Aphonia [None]
  - Asthenia [None]
  - Thirst [None]
  - Contusion [None]
  - Abdominal pain [None]
  - Abdominal distension [None]
  - Weight decreased [None]

NARRATIVE: CASE EVENT DATE: 20180401
